FAERS Safety Report 5773962-8 (Version None)
Quarter: 2008Q2

REPORT INFORMATION
  Report Type: 
  Country: None (occurrence: None)
  Receive Date: 20080601
  Receipt Date: 20080401
  Transmission Date: 20081010
  Serious: No
  Sender: FDA-Public Use
  Company Number: US200803003842

PATIENT
  Age: 66 Year
  Sex: Female
  Weight: 104.3 kg

DRUGS (11)
  1. BYETTA [Suspect]
     Indication: TYPE 2 DIABETES MELLITUS
     Dosage: 5 UG, 2/D, SUBCUTANEOUS : 5 UG, 2/D, SUBCUTANEOUS
     Route: 058
     Dates: start: 20080101, end: 20080201
  2. BYETTA [Suspect]
     Indication: TYPE 2 DIABETES MELLITUS
     Dosage: 5 UG, 2/D, SUBCUTANEOUS : 5 UG, 2/D, SUBCUTANEOUS
     Route: 058
     Dates: start: 20080301
  3. GLYBURIDE [Concomitant]
  4. METFORMIN HCL [Concomitant]
  5. GEMFIBROZIL [Concomitant]
  6. LOVASTATIN [Concomitant]
  7. FUROSEMIDE [Concomitant]
  8. LISINOPRIL [Concomitant]
  9. ASPIRIN [Concomitant]
  10. FISH OIL (FISH OIL) [Concomitant]
  11. COENZYME Q10 [Concomitant]

REACTIONS (6)
  - CHOLELITHIASIS [None]
  - DECREASED APPETITE [None]
  - DRUG INEFFECTIVE [None]
  - DYSPEPSIA [None]
  - NAUSEA [None]
  - WEIGHT DECREASED [None]
